FAERS Safety Report 6576077-4 (Version None)
Quarter: 2010Q1

REPORT INFORMATION
  Report Type: 
  Country: None (occurrence: None)
  Receive Date: 20100209
  Receipt Date: 20100202
  Transmission Date: 20100710
  Serious: Yes (Hospitalization)
  Sender: FDA-Public Use
  Company Number: PHHO2010IT00928

PATIENT
  Sex: Male
  Weight: 137.6 kg

DRUGS (15)
  1. DIOVAN T30230+CAPS [Suspect]
     Indication: HYPERTENSION
     Dosage: 320 MG/ DIL
     Route: 048
     Dates: start: 20090828, end: 20100108
  2. DIOVAN T30230+CAPS [Suspect]
     Dosage: UNK
     Route: 048
     Dates: start: 20100203
  3. BENAZEPRIL T25892+TAB [Suspect]
     Indication: HYPERTENSION
     Dosage: 10 MG
     Dates: start: 20090828, end: 20100108
  4. BENAZEPRIL T25892+TAB [Suspect]
     Dosage: UNK
     Dates: start: 20100115
  5. LIMPIDEX [Concomitant]
  6. LOBIVON [Concomitant]
  7. LASIX [Concomitant]
  8. CARDIOASPIRINA [Concomitant]
  9. ALLOPURINOL [Concomitant]
  10. TAREG [Concomitant]
  11. ESKIM [Concomitant]
  12. ADALAT [Concomitant]
  13. ATORVASTATIN CALCIUM [Concomitant]
  14. NOVORAPID [Concomitant]
  15. LANTUS [Concomitant]

REACTIONS (5)
  - ASTHENIA [None]
  - BLOOD PRESSURE INADEQUATELY CONTROLLED [None]
  - HYPOVOLAEMIA [None]
  - OEDEMA PERIPHERAL [None]
  - RENAL FAILURE CHRONIC [None]
